FAERS Safety Report 5187827-6 (Version None)
Quarter: 2006Q4

REPORT INFORMATION
  Report Type: 
  Country: None (occurrence: None)
  Receive Date: 20061214
  Receipt Date: 20061201
  Transmission Date: 20070319
  Serious: Yes (Other)
  Sender: FDA-Public Use
  Company Number: 2006150814

PATIENT
  Age: 23 Year
  Sex: Female

DRUGS (4)
  1. DEPO-PROVERA [Suspect]
     Dosage: SEE IMAGE
     Dates: start: 19970101, end: 19970101
  2. DEPO-PROVERA [Suspect]
     Dosage: SEE IMAGE
     Dates: start: 20000101, end: 20000101
  3. DEPO-PROVERA [Suspect]
     Dosage: SEE IMAGE
     Dates: start: 20010101, end: 20010101
  4. DEPO-PROVERA [Suspect]
     Dosage: SEE IMAGE
     Dates: start: 20040701, end: 20040701

REACTIONS (2)
  - OSTEOPOROSIS [None]
  - SPINAL FRACTURE [None]
